FAERS Safety Report 9315572 (Version 2)
Quarter: 2013Q2

REPORT INFORMATION
  Report Type: Spontaneous
  Country: US (occurrence: US)
  Receive Date: 20130529
  Receipt Date: 20130607
  Transmission Date: 20140414
  Serious: No
  Sender: FDA-Public Use
  Company Number: US-ASTRAZENECA-2013SE34790

PATIENT
  Age: 68 Year
  Sex: Female
  Weight: 49.9 kg

DRUGS (2)
  1. PULMICORT FLEXHALER [Suspect]
     Indication: ASTHMA
     Dosage: 360 MCG BID
     Route: 055
     Dates: start: 20130510
  2. PREMARIN [Concomitant]

REACTIONS (8)
  - Dry mouth [Not Recovered/Not Resolved]
  - Dyspnoea exertional [Unknown]
  - Dizziness [Unknown]
  - Piloerection [Unknown]
  - Aphthous stomatitis [Unknown]
  - Temperature regulation disorder [Unknown]
  - Cough [Unknown]
  - Rash pruritic [Unknown]
